FAERS Safety Report 5248582-4 (Version None)
Quarter: 2007Q1

REPORT INFORMATION
  Report Type: 
  Country: None (occurrence: None)
  Receive Date: 20070222
  Receipt Date: 20070208
  Transmission Date: 20070707
  Serious: Yes (Disabling, Other)
  Sender: FDA-Public Use
  Company Number: 2007000321

PATIENT
  Age: 86 Year
  Sex: Female

DRUGS (4)
  1. MACUGEN [Suspect]
  2. ACETYLSALICYLIC ACID (ACETYLSALICYLIC ACID) INJECTION [Concomitant]
  3. ANTIHYPERTENSIVE [Concomitant]
  4. ANTILIPIDEMIC [Concomitant]

REACTIONS (1)
  - RETINAL ARTERY OCCLUSION [None]
